FAERS Safety Report 17670868 (Version 1)
Quarter: 2020Q2

REPORT INFORMATION
  Report Type: Spontaneous
  Country: US (occurrence: US)
  Receive Date: 20200415
  Receipt Date: 20200415
  Transmission Date: 20200713
  Serious: No
  Sender: FDA-Public Use
  Company Number: None

PATIENT
  Age: 37 Year
  Sex: Female
  Weight: 55.35 kg

DRUGS (6)
  1. EMGALITY [Suspect]
     Active Substance: GALCANEZUMAB-GNLM
     Dosage: ?          QUANTITY:1 INJECTION(S);OTHER FREQUENCY:ONCE A MONTH;?
  2. VITAMIN D [Concomitant]
     Active Substance: VITAMIN D NOS
  3. XANAX XR [Concomitant]
     Active Substance: ALPRAZOLAM
  4. COQ10 [Concomitant]
     Active Substance: UBIDECARENONE
  5. DEPLIN [Concomitant]
     Active Substance: LEVOMEFOLATE CALCIUM
  6. MIGRELIEF [Concomitant]
     Active Substance: DIETARY SUPPLEMENT

REACTIONS (4)
  - Alopecia [None]
  - Anxiety [None]
  - Insomnia [None]
  - Respiratory tract inflammation [None]

NARRATIVE: CASE EVENT DATE: 20200217
